FAERS Safety Report 6296357-X (Version None)
Quarter: 2009Q3

REPORT INFORMATION
  Report Type: 
  Country: None (occurrence: None)
  Receive Date: 20090804
  Receipt Date: 20090728
  Transmission Date: 20100115
  Serious: Yes (Other)
  Sender: FDA-Public Use
  Company Number: PHHY2008JP08290

PATIENT
  Sex: Female

DRUGS (8)
  1. LAMISIL [Suspect]
     Dosage: 125 MG DAILY
     Route: 048
     Dates: start: 20080416, end: 20080507
  2. LAMISIL [Suspect]
     Indication: TINEA PEDIS
  3. ADALAT CC [Concomitant]
     Indication: HYPERTENSION
     Dosage: 1 DF, UNK
     Route: 048
     Dates: start: 20071016, end: 20080511
  4. ADALAT CC [Concomitant]
     Dosage: UNK
     Route: 048
     Dates: start: 20080514
  5. ADALAT CC [Concomitant]
     Dosage: UNK
     Route: 048
     Dates: start: 20081008
  6. MICARDIS [Concomitant]
     Indication: HYPERTENSION
     Dosage: 1 DF
     Route: 048
     Dates: start: 20071009, end: 20080511
  7. MICARDIS [Concomitant]
     Dosage: UNK
     Route: 048
     Dates: start: 20080514
  8. MICARDIS [Concomitant]
     Dosage: UNK
     Route: 048
     Dates: start: 20080708

REACTIONS (6)
  - BLOOD PRESSURE INCREASED [None]
  - DRUG ERUPTION [None]
  - ERYTHEMA [None]
  - INSOMNIA [None]
  - PRURITUS [None]
  - RASH PAPULAR [None]
